FAERS Safety Report 23564685 (Version 2)
Quarter: 2024Q1

REPORT INFORMATION
  Report Type: Spontaneous
  Country: US (occurrence: None)
  Receive Date: 20240226
  Receipt Date: 20240328
  Transmission Date: 20240410
  Serious: No
  Sender: FDA-Public Use
  Company Number: 2024A034888

PATIENT
  Age: 64 Year
  Sex: Female
  Weight: 70.1 kg

DRUGS (1)
  1. CRESTOR [Suspect]
     Active Substance: ROSUVASTATIN CALCIUM
     Indication: Stent placement
     Route: 048
     Dates: start: 20221201, end: 20230301

REACTIONS (15)
  - Movement disorder [Unknown]
  - Myalgia [Unknown]
  - Asthenia [Not Recovered/Not Resolved]
  - Muscle tone disorder [Unknown]
  - Muscular weakness [Unknown]
  - Dyspnoea [Unknown]
  - Fatigue [Unknown]
  - Blood glucose increased [Unknown]
  - Proteinuria [Unknown]
  - Muscle atrophy [Recovering/Resolving]
  - Musculoskeletal discomfort [Recovering/Resolving]
  - Balance disorder [Recovering/Resolving]
  - Fall [Unknown]
  - Myalgia [Recovering/Resolving]
  - Muscle contractions involuntary [Recovering/Resolving]

NARRATIVE: CASE EVENT DATE: 20230201
